FAERS Safety Report 5275465-6 (Version None)
Quarter: 2007Q1

REPORT INFORMATION
  Report Type: 
  Country: None (occurrence: None)
  Receive Date: 20070326
  Receipt Date: 20070315
  Transmission Date: 20070707
  Serious: Yes (Death)
  Sender: FDA-Public Use
  Company Number: JP-ROCHE-484436

PATIENT
  Age: 66 Year
  Sex: Female

DRUGS (6)
  1. TAMIFLU [Suspect]
     Route: 048
     Dates: start: 20070208, end: 20070212
  2. CARDENALIN [Concomitant]
     Route: 048
     Dates: end: 20070307
  3. BLOPRESS [Concomitant]
     Route: 048
     Dates: end: 20070307
  4. FLOMOX [Concomitant]
     Route: 048
     Dates: start: 20070208, end: 20070212
  5. MEDICON [Concomitant]
     Route: 049
     Dates: start: 20070208, end: 20070212
  6. CALONAL [Concomitant]
     Route: 048
     Dates: start: 20070208, end: 20070208

REACTIONS (2)
  - ALANINE AMINOTRANSFERASE INCREASED [None]
  - HEPATITIS FULMINANT [None]
